FAERS Safety Report 9245985 (Version 1)
Quarter: 2013Q2

REPORT INFORMATION
  Report Type: Spontaneous
  Country: IT (occurrence: IT)
  Receive Date: 20130422
  Receipt Date: 20130422
  Transmission Date: 20140414
  Serious: Yes (Other)
  Sender: FDA-Public Use
  Company Number: IT-PFIZER INC-2013120868

PATIENT
  Age: 25 Year
  Sex: Male

DRUGS (5)
  1. CARBOPLATIN [Suspect]
     Indication: GERM CELL CANCER
     Dosage: AUC 20, CYCLIC (DIVIDED INTO FOUR DOSES GIVEN ON DAYS 1, 2, 3, AND 4)
  2. ETOPOSIDE [Suspect]
     Indication: GERM CELL CANCER
     Dosage: 100 MG/M2, CYCLIC (1-5 DAYS) - INDUCTION
  3. ETOPOSIDE [Suspect]
     Dosage: 1800 MG/M2, CYCLIC (DIVIDED INTO FOUR DOSES GIVEN ON DAYS 1, 2, 3, AND 4)
  4. CYCLOPHOSPHAMIDE [Suspect]
     Indication: GERM CELL CANCER
     Dosage: 6400 MG/M2, CYCLIC (DIVIDED INTO FOUR DOSES GIVEN ON DAYS 1, 2, 3, AND 4)
  5. GRANULOCYTE COLONY STIMULATING FACTOR [Concomitant]
     Dosage: 5 MG/KG, 1X/DAY

REACTIONS (2)
  - Liver injury [Recovered/Resolved]
  - Alpha 1 foetoprotein increased [Recovered/Resolved]
